FAERS Safety Report 14972977 (Version 1)
Quarter: 2018Q2

REPORT INFORMATION
  Report Type: Spontaneous
  Country: US (occurrence: US)
  Receive Date: 20180514
  Receipt Date: 20180514
  Transmission Date: 20180711
  Serious: Yes (Hospitalization)
  Sender: FDA-Public Use
  Company Number: None

PATIENT
  Age: 1 Year
  Sex: Male
  Weight: .45 kg

DRUGS (1)
  1. FENTANYL. [Suspect]
     Active Substance: FENTANYL
     Route: 040
     Dates: start: 20180418, end: 20180418

REACTIONS (2)
  - Product label issue [None]
  - Product use complaint [None]

NARRATIVE: CASE EVENT DATE: 20180418
